FAERS Safety Report 4560279-2 (Version None)
Quarter: 2005Q1

REPORT INFORMATION
  Report Type: 
  Country: None (occurrence: None)
  Receive Date: 20050120
  Receipt Date: 20050120
  Transmission Date: 20050727
  Serious: Yes (Hospitalization)
  Sender: FDA-Public Use
  Company Number: None

PATIENT
  Age: 88 Year
  Sex: Female
  Weight: 76 kg

DRUGS (16)
  1. ENOXAPARIN SODIUM [Suspect]
     Indication: THROMBOSIS PROPHYLAXIS
     Dosage: 80 MG SQ DAILY
     Route: 058
  2. PREVACID [Concomitant]
  3. SINGULAIR [Concomitant]
  4. LEXAPRO [Concomitant]
  5. QUAIFENESN [Concomitant]
  6. TYLENOL [Concomitant]
  7. NITROGLYCERIN [Concomitant]
  8. VIT C [Concomitant]
  9. XOPENEX [Concomitant]
  10. NEBS [Concomitant]
  11. AMBIEN [Concomitant]
  12. ARICEPT [Concomitant]
  13. LASIX [Concomitant]
  14. MUCOMYST [Concomitant]
  15. PREDNISONE [Concomitant]
  16. COUMADIN [Concomitant]

REACTIONS (8)
  - ABDOMINAL HAEMATOMA [None]
  - ABDOMINAL PAIN [None]
  - CHEST PAIN [None]
  - DIVERTICULUM [None]
  - ECCHYMOSIS [None]
  - GASTROINTESTINAL MOTILITY DISORDER [None]
  - IRRITABLE BOWEL SYNDROME [None]
  - TENDERNESS [None]
